FAERS Safety Report 21742414 (Version 1)
Quarter: 2022Q4

REPORT INFORMATION
  Report Type: Spontaneous
  Country: GB (occurrence: GB)
  Receive Date: 20221216
  Receipt Date: 20221216
  Transmission Date: 20230113
  Serious: Yes (Other)
  Sender: FDA-Public Use
  Company Number: GB-MHRA-TPP1335024C4143464YC1669366144013

PATIENT
  Age: 26 Year
  Sex: Female
  Weight: 59 kg

DRUGS (8)
  1. AMOXICILLIN\CLAVULANATE POTASSIUM [Suspect]
     Active Substance: AMOXICILLIN\CLAVULANATE POTASSIUM
     Indication: Product used for unknown indication
     Dosage: UNK
     Route: 065
     Dates: start: 20221016
  2. CALCIUM CARBONATE\SODIUM ALGINATE\SODIUM BICARBONATE [Concomitant]
     Active Substance: CALCIUM CARBONATE\SODIUM ALGINATE\SODIUM BICARBONATE
     Indication: Product used for unknown indication
     Dosage: 2X5ML SPOON 4 TIMES/DAY
     Route: 065
     Dates: start: 20221007
  3. CYCLIZINE [Concomitant]
     Active Substance: CYCLIZINE
     Indication: Product used for unknown indication
     Dosage: UNK (TAKE ONE THREE TIMES A DAY WHEN REQUIRED)
     Route: 065
     Dates: start: 20221007
  4. CHOLECALCIFEROL [Concomitant]
     Active Substance: CHOLECALCIFEROL
     Indication: Product used for unknown indication
     Dosage: TAKE TWO EACH WEEK FOR TEN WEEKS
     Route: 065
     Dates: start: 20220901
  5. IBUPROFEN [Concomitant]
     Active Substance: IBUPROFEN
     Indication: Product used for unknown indication
     Dosage: UNK (APPLY 3-4 TIMES/DAY)
     Route: 065
     Dates: start: 20220912
  6. POLYETHYLENE GLYCOL 3350\POTASSIUM CHLORIDE\SODIUM BICARBONATE\SODIUM [Concomitant]
     Active Substance: POLYETHYLENE GLYCOL 3350\POTASSIUM CHLORIDE\SODIUM BICARBONATE\SODIUM CHLORIDE
     Indication: Product used for unknown indication
     Dosage: UNK (USE AS DIRECTED)
     Route: 065
     Dates: start: 20221007
  7. SERTRALINE [Concomitant]
     Active Substance: SERTRALINE HYDROCHLORIDE
     Indication: Product used for unknown indication
     Dosage: TAKE ONE DAILY
     Route: 065
     Dates: start: 20220901
  8. TRANEXAMIC ACID [Concomitant]
     Active Substance: TRANEXAMIC ACID
     Indication: Product used for unknown indication
     Dosage: 1 GRAM, 3 TIMES A DAY AS LONG AS NEEDED FOR UP IT
     Route: 065
     Dates: start: 20220923

REACTIONS (2)
  - Lip oedema [Recovered/Resolved]
  - Hypersensitivity [Recovered/Resolved]

NARRATIVE: CASE EVENT DATE: 20221016
